FAERS Safety Report 6303686-X (Version None)
Quarter: 2009Q3

REPORT INFORMATION
  Report Type: 
  Country: None (occurrence: None)
  Receive Date: 20090807
  Receipt Date: 20090807
  Transmission Date: 20100115
  Serious: Yes (Other)
  Sender: FDA-Public Use
  Company Number: None

PATIENT
  Age: 41 Year
  Sex: Female
  Weight: 77.1115 kg

DRUGS (2)
  1. CYMBALTA [Suspect]
     Indication: DEPRESSION
     Dosage: 60 MG 1 X PER DAY PO
     Route: 048
     Dates: start: 20090620, end: 20090729
  2. CYMBALTA [Suspect]
     Indication: FIBROMYALGIA
     Dosage: 60 MG 1 X PER DAY PO
     Route: 048
     Dates: start: 20090620, end: 20090729

REACTIONS (14)
  - DEPRESSION [None]
  - DRUG WITHDRAWAL SYNDROME [None]
  - EAR DISORDER [None]
  - HEADACHE [None]
  - HYPERHIDROSIS [None]
  - INSOMNIA [None]
  - NAUSEA [None]
  - OBSESSIVE THOUGHTS [None]
  - PALPITATIONS [None]
  - PANIC ATTACK [None]
  - SUICIDAL IDEATION [None]
  - TREMOR [None]
  - VISUAL IMPAIRMENT [None]
  - VOMITING [None]
